FAERS Safety Report 25255884 (Version 1)
Quarter: 2025Q2

REPORT INFORMATION
  Report Type: Spontaneous
  Country: QA (occurrence: QA)
  Receive Date: 20250430
  Receipt Date: 20250430
  Transmission Date: 20250716
  Serious: Yes (Other)
  Sender: PFIZER
  Company Number: QA-PFIZER INC-PV202500050956

PATIENT
  Age: 33 Year
  Sex: Female

DRUGS (1)
  1. PIPERACILLIN SODIUM\TAZOBACTAM SODIUM [Suspect]
     Active Substance: PIPERACILLIN SODIUM\TAZOBACTAM SODIUM
     Indication: Urinary tract infection pseudomonal

REACTIONS (2)
  - Maternal exposure during pregnancy [Recovered/Resolved]
  - Myelosuppression [Recovered/Resolved]
